FAERS Safety Report 11230204 (Version 1)
Quarter: 2015Q3

REPORT INFORMATION
  Report Type: Spontaneous
  Country: BR (occurrence: BR)
  Receive Date: 20150701
  Receipt Date: 20150701
  Transmission Date: 20151125
  Serious: Yes (Death)
  Sender: FDA-Public Use
  Company Number: BR-PFIZER INC-2014341602

PATIENT
  Age: 69 Year
  Sex: Female

DRUGS (2)
  1. NYSTATIN. [Concomitant]
     Active Substance: NYSTATIN
     Indication: LAXATIVE SUPPORTIVE CARE
     Dosage: 2 MEASURES (LITTLE GLASS), EVERY DAY IN THE MORNING
  2. SUTENT [Suspect]
     Active Substance: SUNITINIB MALATE
     Indication: RENAL CELL CARCINOMA
     Dosage: 50 MG, CYCLIC 4X2, ONCE A DAY, IN THE MORNING
     Route: 048
     Dates: start: 20141126

REACTIONS (9)
  - Asthenia [Recovering/Resolving]
  - Hypertension [Unknown]
  - Blood pressure fluctuation [Recovered/Resolved]
  - Urinary tract infection [Recovering/Resolving]
  - Nausea [Unknown]
  - Gingival injury [Recovered/Resolved]
  - Fatigue [Unknown]
  - Death [Fatal]
  - Mouth ulceration [Unknown]

NARRATIVE: CASE EVENT DATE: 2014
